FAERS Safety Report 15766007 (Version 1)
Quarter: 2018Q4

REPORT INFORMATION
  Report Type: Spontaneous
  Country: US (occurrence: US)
  Receive Date: 20181227
  Receipt Date: 20181227
  Transmission Date: 20190205
  Serious: No
  Sender: FDA-Public Use
  Company Number: US-SA-2018SA392471

PATIENT
  Sex: Female

DRUGS (2)
  1. DUPIXENT [Suspect]
     Active Substance: DUPILUMAB
     Indication: DERMATITIS ATOPIC
     Dosage: 300 MG, QOW
     Dates: start: 20181002
  2. PHENOBARBITAL. [Concomitant]
     Active Substance: PHENOBARBITAL

REACTIONS (7)
  - Pollakiuria [Unknown]
  - Ocular hyperaemia [Unknown]
  - Throat tightness [Unknown]
  - Back pain [Unknown]
  - Pruritus [Unknown]
  - Feeling jittery [Unknown]
  - Cough [Unknown]
